FAERS Safety Report 10177982 (Version 2)
Quarter: 2014Q2

REPORT INFORMATION
  Report Type: Spontaneous
  Country: US (occurrence: US)
  Receive Date: 20140516
  Receipt Date: 20140516
  Transmission Date: 20141212
  Serious: Yes (Life-Threatening, Other)
  Sender: FDA-Public Use
  Company Number: US-ALEXION-A201401504

PATIENT
  Sex: 0

DRUGS (2)
  1. SOLIRIS 300MG [Suspect]
     Indication: HAEMOLYTIC URAEMIC SYNDROME
     Route: 042
  2. SOLIRIS 300MG [Suspect]
     Indication: OFF LABEL USE

REACTIONS (9)
  - Cardiac arrest [Unknown]
  - Cardiac failure [Unknown]
  - Respiratory failure [Unknown]
  - Abdominal compartment syndrome [Unknown]
  - Intestinal infarction [Unknown]
  - Cerebrovascular accident [Unknown]
  - Renal failure chronic [Not Recovered/Not Resolved]
  - Hemiplegia [Not Recovered/Not Resolved]
  - Off label use [Unknown]
